FAERS Safety Report 6647009-5 (Version None)
Quarter: 2010Q1

REPORT INFORMATION
  Report Type: 
  Country: None (occurrence: None)
  Receive Date: 20100323
  Receipt Date: 20091210
  Transmission Date: 20100710
  Serious: No
  Sender: FDA-Public Use
  Company Number: A0834584A

PATIENT
  Age: 77 Year
  Sex: Female

DRUGS (4)
  1. LAMICTAL XR [Suspect]
     Indication: PARTIAL SEIZURES
     Dosage: 100MG PER DAY
     Route: 048
     Dates: start: 20091101
  2. OMEPRAZOLE [Concomitant]
  3. SYNTHROID [Concomitant]
  4. ZYRTEC [Concomitant]

REACTIONS (6)
  - BALANCE DISORDER [None]
  - CONTUSION [None]
  - ERYTHEMA [None]
  - FALL [None]
  - FEELING DRUNK [None]
  - LOCAL SWELLING [None]
